FAERS Safety Report 4823503-4 (Version None)
Quarter: 2005Q4

REPORT INFORMATION
  Report Type: 
  Country: None (occurrence: None)
  Receive Date: 20051107
  Receipt Date: 20051024
  Transmission Date: 20060501
  Serious: Yes (Other)
  Sender: FDA-Public Use
  Company Number: 21793

PATIENT
  Age: 3 Year
  Sex: Female

DRUGS (1)
  1. CLINDAMYCIN PHOSPHATE [Suspect]
     Indication: OSTEOMYELITIS
     Dosage: 150MG/Q 8HRS/IV
     Route: 042
     Dates: start: 20051006, end: 20051014

REACTIONS (2)
  - CENTRAL LINE INFECTION [None]
  - PSEUDOMONAS INFECTION [None]
